FAERS Safety Report 18407012 (Version 3)
Quarter: 2020Q4

REPORT INFORMATION
  Report Type: Report from Study
  Country: US (occurrence: US)
  Receive Date: 20201021
  Receipt Date: 20201209
  Transmission Date: 20210114
  Serious: Yes (Hospitalization)
  Sender: FDA-Public Use
  Company Number: US-JNJFOC-20201020484

PATIENT
  Age: 55 Year
  Sex: Male
  Weight: 77.18 kg

DRUGS (4)
  1. DARZALEX FASPRO [Suspect]
     Active Substance: DARATUMUMAB\HYALURONIDASE-FIHJ
     Indication: PRIMARY AMYLOIDOSIS
     Dosage: 2 DOSES WERE SUBQ SHOTS
     Route: 058
     Dates: end: 202008
  2. FLOMAX [Concomitant]
     Active Substance: TAMSULOSIN HYDROCHLORIDE
     Indication: PROSTATE CANCER
     Route: 065
  3. DARZALEX [Suspect]
     Active Substance: DARATUMUMAB
     Indication: PRIMARY AMYLOIDOSIS
     Dosage: EVERY TWO WEEKS, INFUSION, 46 INFUSIONS TOTAL
     Route: 042
     Dates: start: 201807
  4. SODIUM BICARBONATE. [Concomitant]
     Active Substance: SODIUM BICARBONATE
     Indication: RENAL DISORDER
     Route: 065

REACTIONS (7)
  - Product use in unapproved indication [Unknown]
  - Renal amyloidosis [Recovering/Resolving]
  - Light chain analysis increased [Unknown]
  - Vomiting [Recovered/Resolved]
  - Infusion related reaction [Recovered/Resolved]
  - Off label use [Unknown]
  - Nausea [Recovered/Resolved]

NARRATIVE: CASE EVENT DATE: 201807
